FAERS Safety Report 20156777 (Version 2)
Quarter: 2021Q4

REPORT INFORMATION
  Report Type: Spontaneous
  Country: CZ (occurrence: CZ)
  Receive Date: 20211207
  Receipt Date: 20211231
  Transmission Date: 20220303
  Serious: Yes (Other)
  Sender: FDA-Public Use
  Company Number: CZ-TEVA-2021-CZ-1976546

PATIENT
  Age: 8 Decade
  Sex: Female

DRUGS (15)
  1. METFORMIN [Suspect]
     Active Substance: METFORMIN HYDROCHLORIDE
     Indication: Type 2 diabetes mellitus
     Dosage: 500 MILLIGRAM DAILY; 500 MG AFTER DINNER
     Route: 065
     Dates: start: 201809, end: 2020
  2. METFORMIN [Suspect]
     Active Substance: METFORMIN HYDROCHLORIDE
     Route: 065
     Dates: start: 202003
  3. ATORVASTATIN [Suspect]
     Active Substance: ATORVASTATIN
     Dosage: 10 MILLIGRAM DAILY; 10 MG IN DOSE 0-0-1
     Route: 065
     Dates: start: 201610, end: 202106
  4. INSULIN GLARGINE\LIXISENATIDE [Suspect]
     Active Substance: INSULIN GLARGINE\LIXISENATIDE
     Indication: Type 2 diabetes mellitus
     Dosage: 50 UNITS
     Route: 065
     Dates: end: 2020
  5. INSULIN GLARGINE\LIXISENATIDE [Suspect]
     Active Substance: INSULIN GLARGINE\LIXISENATIDE
     Route: 065
     Dates: start: 202003
  6. INSULIN GLARGINE\LIXISENATIDE [Suspect]
     Active Substance: INSULIN GLARGINE\LIXISENATIDE
     Indication: Type 2 diabetes mellitus
     Route: 065
     Dates: end: 202001
  7. METFORMIN [Concomitant]
     Active Substance: METFORMIN HYDROCHLORIDE
     Dosage: 2550 MILLIGRAM DAILY; 850 MG 1-1-1
  8. GLICLAZIDE [Concomitant]
     Active Substance: GLICLAZIDE
     Dosage: 30 MG 1 X1 GLYCLADA 30 MG
  9. GLICLAZIDE [Concomitant]
     Active Substance: GLICLAZIDE
     Dosage: DIAPREL MR INCREASED TO 60 MG
  10. RAMIPRIL [Concomitant]
     Active Substance: RAMIPRIL
     Dosage: 2.5 MILLIGRAM DAILY; 2.5 MG 1-0-0
  11. SPIRONOLACTONE [Concomitant]
     Active Substance: SPIRONOLACTONE
     Dosage: 25 MILLIGRAM DAILY; 25 MG 1-0-0
  12. FUROSEMIDE [Concomitant]
     Active Substance: FUROSEMIDE
     Dosage: FUROSEMIDE 125 MG 1 / 2-0-0
  13. KCL [Concomitant]
     Active Substance: POTASSIUM CHLORIDE
     Dosage: 0-1-1
  14. METOPROLOL [Concomitant]
     Active Substance: METOPROLOL
     Dosage: 25 MILLIGRAM DAILY; 25 MG 1-0-0
  15. ALPRAZOLAM [Concomitant]
     Active Substance: ALPRAZOLAM
     Dosage: .5 MILLIGRAM DAILY; 0.5 MG 0-0-1

REACTIONS (6)
  - Seizure [Recovered/Resolved]
  - Abdominal pain lower [Recovered/Resolved]
  - Diarrhoea [Recovered/Resolved]
  - Constipation [Recovered/Resolved]
  - Drug intolerance [Unknown]
  - Treatment noncompliance [Unknown]

NARRATIVE: CASE EVENT DATE: 20200101
